FAERS Safety Report 8803846 (Version 1)
Quarter: 2012Q4

REPORT INFORMATION
  Report Type: 
  Country: BR (occurrence: BR)
  Receive Date: 20120923
  Receipt Date: 20120923
  Transmission Date: 20130627
  Serious: Yes (Hospitalization)
  Sender: FDA-Public Use
  Company Number: BR-MYLANLABS-2012S1019068

PATIENT
  Age: 76 Year
  Sex: Female

DRUGS (2)
  1. TRETINOIN [Suspect]
     Indication: ACUTE PROMYELOCYTIC LEUKAEMIA
     Dosage: 45 mg/m2/day
     Route: 065
  2. CYTARABINE [Concomitant]
     Indication: ACUTE PROMYELOCYTIC LEUKAEMIA
     Dosage: 20 mg/m2/day
     Route: 065

REACTIONS (3)
  - Myocardial stunning [Recovered/Resolved]
  - Retinoic acid syndrome [Recovered/Resolved]
  - Myocardial ischaemia [Recovered/Resolved]
